FAERS Safety Report 24651167 (Version 2)
Quarter: 2024Q4

REPORT INFORMATION
  Report Type: Spontaneous
  Country: PL (occurrence: PL)
  Receive Date: 20241122
  Receipt Date: 20241204
  Transmission Date: 20250115
  Serious: Yes (Life-Threatening, Other)
  Sender: AUROBINDO
  Company Number: PL-ABBVIE-5990122

PATIENT
  Age: 82 Year
  Sex: Male

DRUGS (5)
  1. AZACITIDINE [Suspect]
     Active Substance: AZACITIDINE
     Indication: Acute myeloid leukaemia
     Dosage: UNK
     Route: 065
  2. VENETOCLAX [Suspect]
     Active Substance: VENETOCLAX
     Indication: Acute myeloid leukaemia
     Dosage: 400 DOSAGE FORM
     Route: 048
     Dates: start: 202409, end: 202409
  3. VENETOCLAX [Suspect]
     Active Substance: VENETOCLAX
     Dosage: 400 DOSAGE FORM
     Route: 048
     Dates: start: 2024, end: 2024
  4. VENETOCLAX [Suspect]
     Active Substance: VENETOCLAX
     Dosage: 400 DOSAGE FORM
     Route: 048
     Dates: start: 2024
  5. VENETOCLAX [Suspect]
     Active Substance: VENETOCLAX
     Dosage: 400 DOSAGE FORM
     Route: 048
     Dates: start: 202402

REACTIONS (3)
  - Neutropenia [Not Recovered/Not Resolved]
  - Drug resistance [Unknown]
  - Asthenia [Unknown]

NARRATIVE: CASE EVENT DATE: 20240901
